FAERS Safety Report 5778927-8 (Version None)
Quarter: 2008Q2

REPORT INFORMATION
  Report Type: 
  Country: None (occurrence: None)
  Receive Date: 20080619
  Receipt Date: 20080616
  Transmission Date: 20081010
  Serious: Yes (Disabling)
  Sender: FDA-Public Use
  Company Number: FR-WYE-G01674008

PATIENT
  Age: 40 Year
  Sex: Female

DRUGS (5)
  1. TORISEL [Suspect]
     Indication: RENAL CANCER METASTATIC
     Route: 042
     Dates: end: 20080101
  2. TORISEL [Suspect]
     Route: 042
     Dates: start: 20080101
  3. AMITRIPTYLINE HCL [Concomitant]
     Dosage: UNKNOWN
  4. ZYRTEC [Concomitant]
     Dosage: UNKNOWN
     Route: 048
     Dates: start: 20080101
  5. POLARAMINE [Concomitant]
     Dosage: UNKNOWN; ADMINISTERED BEFORE EACH TORISEL COURSE

REACTIONS (4)
  - ABDOMINAL DISTENSION [None]
  - MUCOUS MEMBRANE DISORDER [None]
  - OEDEMA PERIPHERAL [None]
  - SKIN REACTION [None]
